FAERS Safety Report 16618755 (Version 11)
Quarter: 2020Q1

REPORT INFORMATION
  Report Type: Spontaneous
  Country: US (occurrence: US)
  Receive Date: 20190723
  Receipt Date: 20200313
  Transmission Date: 20200409
  Serious: Yes (Other)
  Sender: FDA-Public Use
  Company Number: US-PFIZER INC-2019311069

PATIENT
  Age: 84 Year
  Sex: Female

DRUGS (2)
  1. PREMPRO [Suspect]
     Active Substance: ESTROGENS, CONJUGATED\MEDROXYPROGESTERONE ACETATE
     Indication: HORMONE REPLACEMENT THERAPY
     Dosage: 1 DF, 1X/DAY(ESTROGENS CONJUGATED (0.3MG), MEDROXYPROGESTERONE ACETATE (1.5MG))
     Route: 048
     Dates: start: 201803
  2. PREMPRO [Suspect]
     Active Substance: ESTROGENS, CONJUGATED\MEDROXYPROGESTERONE ACETATE
     Indication: ROUTINE HEALTH MAINTENANCE
     Dosage: 0.6 MG, UNK

REACTIONS (12)
  - Product label issue [Unknown]
  - Malaise [Unknown]
  - Cardiac disorder [Unknown]
  - Hypertension [Unknown]
  - Abdominal distension [Not Recovered/Not Resolved]
  - Vaginal haemorrhage [Recovered/Resolved]
  - Weight increased [Unknown]
  - Swelling [Unknown]
  - Abdominal pain [Recovering/Resolving]
  - Irritable bowel syndrome [Unknown]
  - Product quality issue [Unknown]
  - Diverticulum [Unknown]

NARRATIVE: CASE EVENT DATE: 20190717
